FAERS Safety Report 18969436 (Version 1)
Quarter: 2021Q1

REPORT INFORMATION
  Report Type: Spontaneous
  Country: US (occurrence: US)
  Receive Date: 20210304
  Receipt Date: 20210304
  Transmission Date: 20210420
  Serious: No
  Sender: FDA-Public Use
  Company Number: US-CURIUM-2005000138

PATIENT
  Age: 43 Year
  Sex: Female

DRUGS (1)
  1. TECHNESCAN HDP [Suspect]
     Active Substance: TECHNETIUM TC-99M OXIDRONATE
     Indication: BONE SCAN
     Route: 042
     Dates: start: 20050808, end: 20050808

REACTIONS (3)
  - Injection site pain [Unknown]
  - Injection site swelling [Recovered/Resolved]
  - Injection site discolouration [Unknown]

NARRATIVE: CASE EVENT DATE: 20050808
